FAERS Safety Report 9731724 (Version 4)
Quarter: 2014Q2

REPORT INFORMATION
  Report Type: Spontaneous
  Country: JP (occurrence: JP)
  Receive Date: 20131205
  Receipt Date: 20140509
  Transmission Date: 20141212
  Serious: Yes (Death, Other)
  Sender: FDA-Public Use
  Company Number: JP-ROCHE-1312439

PATIENT
  Age: 80 Year
  Sex: Male

DRUGS (13)
  1. LUCENTIS [Suspect]
     Indication: AGE-RELATED MACULAR DEGENERATION
     Route: 050
     Dates: start: 20130827, end: 20130827
  2. LUCENTIS [Suspect]
     Indication: MACULAR OEDEMA
  3. LUCENTIS [Suspect]
     Indication: RETINAL VEIN OCCLUSION
  4. DIGOSIN [Concomitant]
  5. WARFARIN [Concomitant]
     Route: 065
     Dates: start: 20070419
  6. HALFDIGOXIN KY [Concomitant]
     Route: 065
     Dates: start: 20070808
  7. VASOLAN [Concomitant]
     Route: 065
     Dates: start: 20070320
  8. PARIET [Concomitant]
     Route: 065
     Dates: start: 20130227
  9. REBAMIPIDE [Concomitant]
     Route: 065
     Dates: start: 20130227
  10. KIPRES [Concomitant]
     Route: 065
     Dates: start: 20041119
  11. HOKUNALIN [Concomitant]
     Route: 065
     Dates: start: 20041112
  12. SPIRIVA [Concomitant]
     Route: 065
     Dates: start: 20060118
  13. ANTIARRHYTHMIC AGENTS [Concomitant]

REACTIONS (15)
  - Cardiac failure [Fatal]
  - Myocardial infarction [Fatal]
  - Retinal injury [Unknown]
  - Visual acuity reduced [Unknown]
  - Age-related macular degeneration [Unknown]
  - No therapeutic response [Unknown]
  - Blood pressure decreased [Unknown]
  - Dysstasia [Unknown]
  - Gait disturbance [Unknown]
  - Heart rate decreased [Unknown]
  - Decreased appetite [Unknown]
  - Dizziness [Unknown]
  - Blood urea increased [Unknown]
  - Blood creatinine increased [Unknown]
  - Dehydration [Unknown]
